FAERS Safety Report 12318442 (Version 1)
Quarter: 2016Q2

REPORT INFORMATION
  Report Type: Spontaneous
  Country: US (occurrence: None)
  Receive Date: 20160428
  Receipt Date: 20160428
  Transmission Date: 20160815
  Serious: No
  Sender: FDA-Public Use
  Company Number: None

PATIENT
  Age: 58 Year
  Sex: Male
  Weight: 85.28 kg

DRUGS (3)
  1. ALPRAZOLAM 2MG [Suspect]
     Active Substance: ALPRAZOLAM
     Indication: ANXIETY
     Route: 048
     Dates: start: 19900101
  2. XANAX [Concomitant]
     Active Substance: ALPRAZOLAM
  3. NEURONTIN [Concomitant]
     Active Substance: GABAPENTIN

REACTIONS (3)
  - Product substitution issue [None]
  - Anxiety [None]
  - Nausea [None]
